FAERS Safety Report 13534165 (Version 1)
Quarter: 2017Q2

REPORT INFORMATION
  Report Type: Spontaneous
  Country: CH (occurrence: CH)
  Receive Date: 20170510
  Receipt Date: 20170510
  Transmission Date: 20170830
  Serious: Yes (Hospitalization)
  Sender: FDA-Public Use
  Company Number: CH-MEDA-2017050042

PATIENT
  Age: 76 Year
  Sex: Male

DRUGS (10)
  1. ESOMEP MUPS [Concomitant]
     Active Substance: OMEPRAZOLE
  2. JANUMET [Suspect]
     Active Substance: METFORMIN HYDROCHLORIDE\SITAGLIPTIN PHOSPHATE
     Indication: DIABETES MELLITUS
     Route: 048
  3. DIAMICRON MR [Suspect]
     Active Substance: GLICLAZIDE
     Route: 048
  4. COVERSUM N [Concomitant]
     Active Substance: PERINDOPRIL
  5. TOREM [Suspect]
     Active Substance: TORSEMIDE
     Route: 048
  6. DEXAMETHASON GALEPHARM 4 MG [Suspect]
     Active Substance: DEXAMETHASONE
     Indication: OEDEMA
     Route: 048
     Dates: start: 20161228
  7. ASPIRIN CARDIO 100 [Concomitant]
     Active Substance: ASPIRIN
     Route: 048
  8. ALDACTONE [Concomitant]
     Active Substance: SPIRONOLACTONE
  9. CONCOR 2.5 MG [Concomitant]
  10. VITAMIN D3 STREULI [Concomitant]
     Dosage: DISSOLVE 4000 IU/ML, 0.25 ML USING A PIPETTE

REACTIONS (2)
  - Drug interaction [Unknown]
  - Hyperglycaemia [Unknown]

NARRATIVE: CASE EVENT DATE: 20170106
